FAERS Safety Report 10400522 (Version 1)
Quarter: 2014Q3

REPORT INFORMATION
  Report Type: Spontaneous
  Country: US (occurrence: US)
  Receive Date: 20140821
  Receipt Date: 20140821
  Transmission Date: 20150326
  Serious: No
  Sender: FDA-Public Use
  Company Number: US-ASTRAZENECA-2013SE73697

PATIENT
  Age: 80 Year
  Sex: Female
  Weight: 44.5 kg

DRUGS (2)
  1. SYMBICORT [Suspect]
     Active Substance: BUDESONIDE\FORMOTEROL FUMARATE DIHYDRATE
     Indication: ASTHMA
     Dosage: 80/4.5 MCG BID
     Route: 055
  2. LOT OF MEDICATIONS [Concomitant]

REACTIONS (4)
  - Lung disorder [Unknown]
  - Cough [Unknown]
  - Intentional product misuse [Unknown]
  - Off label use [Unknown]
